FAERS Safety Report 8564112-3 (Version None)
Quarter: 2012Q3

REPORT INFORMATION
  Report Type: 
  Country: None (occurrence: None)
  Receive Date: 20120803
  Receipt Date: 20120724
  Transmission Date: 20120928
  Serious: Yes (Hospitalization, Other)
  Sender: FDA-Public Use
  Company Number: DE-US-EMD SERONO, INC.-7149682

PATIENT
  Age: 46 Year
  Sex: Female

DRUGS (1)
  1. REBIF [Suspect]
     Indication: MULTIPLE SCLEROSIS
     Route: 058

REACTIONS (6)
  - ARRHYTHMIA [None]
  - HYPOKALAEMIA [None]
  - INFLUENZA [None]
  - HEART RATE DECREASED [None]
  - PULMONARY OEDEMA [None]
  - LIVER FUNCTION TEST ABNORMAL [None]
